FAERS Safety Report 9369525 (Version 3)
Quarter: 2014Q2

REPORT INFORMATION
  Report Type: Spontaneous
  Country: US (occurrence: US)
  Receive Date: 20130626
  Receipt Date: 20140520
  Transmission Date: 20141212
  Serious: No
  Sender: FDA-Public Use
  Company Number: US-PFIZER INC-2011233980

PATIENT
  Age: 63 Year
  Sex: Female
  Weight: 47.6 kg

DRUGS (4)
  1. PREMARIN [Suspect]
     Indication: MENOPAUSAL SYMPTOMS
     Dosage: 0.5 G, 2X/WEEK
     Route: 067
  2. TIMOLOL [Concomitant]
     Indication: GLAUCOMA
     Dosage: UNK
     Route: 047
  3. RESTASIS [Concomitant]
     Dosage: UNK
  4. METOPROLOL SUCCINATE [Concomitant]
     Dosage: UNK

REACTIONS (3)
  - Product quality issue [Unknown]
  - Vaginal erosion [Unknown]
  - Vulvovaginal pain [Unknown]
